FAERS Safety Report 17809637 (Version 2)
Quarter: 2020Q3

REPORT INFORMATION
  Report Type: Report from Study
  Country: CA (occurrence: CA)
  Receive Date: 20200520
  Receipt Date: 20200904
  Transmission Date: 20201104
  Serious: Yes (Other)
  Sender: FDA-Public Use
  Company Number: NVSC2020CA051416

PATIENT
  Age: 31 Year
  Sex: Male

DRUGS (14)
  1. XOLAIR [Suspect]
     Active Substance: OMALIZUMAB
     Dosage: 300 MG, Q3W
     Route: 065
     Dates: start: 20200123
  2. VENTOLIN [Concomitant]
     Active Substance: ALBUTEROL SULFATE
     Indication: URTICARIA
     Dosage: 2 DF, QD
     Route: 065
  3. LORAZEPAM. [Concomitant]
     Active Substance: LORAZEPAM
     Indication: ANXIETY
     Dosage: 1 DF, QD
     Route: 065
     Dates: start: 2011
  4. PREDNISONE. [Suspect]
     Active Substance: PREDNISONE
     Dosage: 20 MG, QD
     Route: 065
  5. PREDNISONE. [Suspect]
     Active Substance: PREDNISONE
     Indication: PRODUCT USED FOR UNKNOWN INDICATION
     Dosage: 60 MG, QD
     Route: 065
  6. ALLEGRA [Concomitant]
     Active Substance: FEXOFENADINE HYDROCHLORIDE
     Indication: URTICARIA
     Dosage: 4 DF, QD
     Route: 065
     Dates: start: 201804
  7. VENTOLIN [Concomitant]
     Active Substance: ALBUTEROL SULFATE
     Indication: HYPERSENSITIVITY
  8. RABEPRAZOLE [Concomitant]
     Active Substance: RABEPRAZOLE
     Indication: ULCER
     Dosage: 1 DF, BID
     Route: 065
     Dates: start: 201802
  9. XOLAIR [Suspect]
     Active Substance: OMALIZUMAB
     Indication: CHRONIC SPONTANEOUS URTICARIA
     Dosage: 300 MG, Q3W (EVERY 3 WEEKS)
     Route: 058
     Dates: start: 20180604
  10. XOLAIR [Suspect]
     Active Substance: OMALIZUMAB
     Dosage: 300 MG, Q3W
     Route: 065
     Dates: start: 20200424
  11. MONTELUKAST [Concomitant]
     Active Substance: MONTELUKAST SODIUM
     Indication: URTICARIA
     Dosage: 1 DF, QD
     Route: 065
     Dates: start: 201801
  12. XOLAIR [Suspect]
     Active Substance: OMALIZUMAB
     Dosage: 300 MG, Q3W
     Route: 058
     Dates: start: 20200213
  13. RANITIDINE. [Concomitant]
     Active Substance: RANITIDINE
     Indication: ULCER
     Dosage: 1 DF, QD
     Route: 065
     Dates: start: 201801
  14. ZENHALE [Concomitant]
     Active Substance: FORMOTEROL FUMARATE\MOMETASONE FUROATE
     Indication: PRODUCT USED FOR UNKNOWN INDICATION
     Dosage: UNK
     Route: 065

REACTIONS (12)
  - Asthma [Unknown]
  - Urticaria [Unknown]
  - Pneumonia [Recovering/Resolving]
  - Ligament sprain [Unknown]
  - Weight increased [Unknown]
  - Ligament rupture [Unknown]
  - Discomfort [Unknown]
  - Chest discomfort [Recovering/Resolving]
  - Paternal exposure during pregnancy [Unknown]
  - Hypersensitivity [Unknown]
  - Fall [Unknown]
  - Anxiety [Unknown]

NARRATIVE: CASE EVENT DATE: 20200201
